FAERS Safety Report 23204188 (Version 2)
Quarter: 2023Q4

REPORT INFORMATION
  Report Type: Spontaneous
  Country: EC (occurrence: EC)
  Receive Date: 20231120
  Receipt Date: 20231124
  Transmission Date: 20240109
  Serious: Yes (Other)
  Sender: FDA-Public Use
  Company Number: EC-GLAXOSMITHKLINE-EC2023AMR158702

PATIENT

DRUGS (1)
  1. WELLBUTRIN XL [Suspect]
     Active Substance: BUPROPION HYDROCHLORIDE
     Indication: Product used for unknown indication
     Dosage: UNK

REACTIONS (13)
  - Fall [Unknown]
  - Limb discomfort [Unknown]
  - Bradyphrenia [Unknown]
  - Memory impairment [Unknown]
  - Speech disorder [Unknown]
  - Hemiparesis [Unknown]
  - Deafness [Unknown]
  - Abnormal behaviour [Unknown]
  - Depression [Unknown]
  - Anxiety [Unknown]
  - Weight decreased [Unknown]
  - Neurodegenerative disorder [Unknown]
  - Deafness [Unknown]
